FAERS Safety Report 9663489 (Version 4)
Quarter: 2014Q1

REPORT INFORMATION
  Report Type: Spontaneous
  Country: JP (occurrence: JP)
  Receive Date: 20131101
  Receipt Date: 20140319
  Transmission Date: 20141002
  Serious: Yes (Death, Other)
  Sender: FDA-Public Use
  Company Number: JP-ROCHE-1286811

PATIENT
  Age: 88 Year
  Sex: Female
  Weight: 36 kg

DRUGS (9)
  1. ACTEMRA [Suspect]
     Indication: RHEUMATOID ARTHRITIS
     Dosage: ADMINISTERING TWICE
     Route: 041
     Dates: start: 20130827, end: 20130827
  2. ACTEMRA [Suspect]
     Dosage: ADMINISTERING TWICE
     Route: 041
     Dates: start: 20130924, end: 20130924
  3. PREDNISOLONE [Suspect]
     Indication: RHEUMATOID ARTHRITIS
     Dosage: 5-10 MG
     Route: 048
     Dates: start: 2007, end: 20131013
  4. ARTIST [Concomitant]
     Indication: CARDIAC FAILURE CONGESTIVE
     Route: 048
     Dates: start: 20130907, end: 20131013
  5. LASIX [Concomitant]
     Indication: CARDIAC FAILURE CONGESTIVE
     Route: 048
     Dates: end: 20131013
  6. NITOROL R [Concomitant]
     Indication: CARDIAC FAILURE CONGESTIVE
     Route: 048
     Dates: end: 20131013
  7. TAKEPRON [Concomitant]
     Indication: PROPHYLAXIS
     Route: 048
     Dates: end: 20131013
  8. THYRADIN-S [Concomitant]
     Indication: GOITRE
     Route: 048
  9. NITRODERM TTS [Concomitant]
     Indication: CARDIAC FAILURE CONGESTIVE
     Route: 062
     Dates: end: 20131013

REACTIONS (3)
  - Sepsis [Fatal]
  - Cardiac failure congestive [Fatal]
  - Platelet count decreased [Not Recovered/Not Resolved]
